FAERS Safety Report 7438612-3 (Version None)
Quarter: 2011Q2

REPORT INFORMATION
  Report Type: 
  Country: None (occurrence: None)
  Receive Date: 20110426
  Receipt Date: 20110420
  Transmission Date: 20111010
  Serious: Yes (Congenital Anomaly, Other)
  Sender: FDA-Public Use
  Company Number: FR-PFIZER INC-2011078872

PATIENT
  Sex: Male
  Weight: 2.85 kg

DRUGS (9)
  1. FLUOXETINE [Suspect]
     Dosage: UNK
     Dates: end: 20101201
  2. LEVOTHYROX [Suspect]
     Dosage: UNK
     Route: 064
     Dates: end: 20110115
  3. FLUTICASONE PROPIONATE [Suspect]
     Dosage: UNK
     Route: 064
     Dates: end: 20110115
  4. OLANZAPINE [Suspect]
     Dosage: UNK
     Dates: end: 20101201
  5. PROZAC [Suspect]
     Dosage: 20 MG, 1X/DAY
     Route: 064
     Dates: end: 20101201
  6. CYAMEMAZINE [Suspect]
     Dosage: UNK
     Dates: end: 20101201
  7. XANAX [Suspect]
     Dosage: 0.5 MG, 6 TO 8X/DAY
     Route: 064
     Dates: end: 20110115
  8. ZYPREXA [Suspect]
     Dosage: 10 MG, ONCE DAILY IN THE MORNING
     Route: 064
     Dates: end: 20101201
  9. TERCIAN [Suspect]
     Dosage: 15 GTT, 2X/DAY
     Route: 064
     Dates: end: 20101201

REACTIONS (6)
  - IRIS COLOBOMA [None]
  - DRUG EXPOSURE DURING PREGNANCY [None]
  - RETINAL COLOBOMA [None]
  - MATERNAL DRUGS AFFECTING FOETUS [None]
  - C-REACTIVE PROTEIN INCREASED [None]
  - URINARY TRACT INFECTION [None]
